FAERS Safety Report 16677389 (Version 3)
Quarter: 2019Q3

REPORT INFORMATION
  Report Type: Other
  Country: US (occurrence: US)
  Receive Date: 20190807
  Receipt Date: 20190822
  Transmission Date: 20191004
  Serious: Yes (Hospitalization, Other)
  Sender: FDA-Public Use
  Company Number: US-AMAG PHARMACEUTICALS, INC.-AMAG201904008

PATIENT
  Age: 0 Year
  Sex: Male
  Weight: 1.68 kg

DRUGS (1)
  1. MAKENA [Suspect]
     Active Substance: HYDROXYPROGESTERONE CAPROATE
     Indication: FOETAL EXPOSURE DURING PREGNANCY
     Route: 064
     Dates: start: 20190401, end: 20190701

REACTIONS (2)
  - Foetal heart rate deceleration abnormality [Unknown]
  - Premature baby [Unknown]

NARRATIVE: CASE EVENT DATE: 201907
